FAERS Safety Report 14948557 (Version 3)
Quarter: 2018Q2

REPORT INFORMATION
  Report Type: Report from Study
  Country: FR (occurrence: FR)
  Receive Date: 20180529
  Receipt Date: 20180611
  Transmission Date: 20180711
  Serious: Yes (Other)
  Sender: FDA-Public Use
  Company Number: FR-BAYER-2018-078166

PATIENT
  Age: 61 Year
  Sex: Male

DRUGS (15)
  1. KOVALTRY [Suspect]
     Active Substance: ANTIHEMOPHILIC FACTOR, HUMAN RECOMBINANT
     Indication: HAEMORRHAGE PROPHYLAXIS
     Dosage: 5000 IU, QD
     Route: 042
     Dates: start: 20180428, end: 20180428
  2. KOVALTRY [Suspect]
     Active Substance: ANTIHEMOPHILIC FACTOR, HUMAN RECOMBINANT
     Indication: HAEMORRHAGE PROPHYLAXIS
     Dosage: 4000 IU, BID
     Route: 042
     Dates: start: 20180505, end: 20180507
  3. KOVALTRY [Suspect]
     Active Substance: ANTIHEMOPHILIC FACTOR, HUMAN RECOMBINANT
     Indication: HAEMORRHAGE PROPHYLAXIS
     Dosage: 4000 IU, TIW
     Route: 042
  4. KOVALTRY [Suspect]
     Active Substance: ANTIHEMOPHILIC FACTOR, HUMAN RECOMBINANT
     Indication: HAEMORRHAGE PROPHYLAXIS
     Dosage: 4000 IU, QD ON-DEMAND
     Route: 042
     Dates: start: 20180402, end: 20180404
  5. KOVALTRY [Suspect]
     Active Substance: ANTIHEMOPHILIC FACTOR, HUMAN RECOMBINANT
     Indication: HAEMORRHAGE PROPHYLAXIS
     Dosage: 4000 IU, QD ON-DEMAND
     Route: 042
     Dates: start: 20180407, end: 201804
  6. KOVALTRY [Suspect]
     Active Substance: ANTIHEMOPHILIC FACTOR, HUMAN RECOMBINANT
     Indication: HAEMORRHAGE PROPHYLAXIS
     Dosage: 2000 IU, BID
     Route: 042
     Dates: start: 20180412, end: 20180425
  7. KOVALTRY [Suspect]
     Active Substance: ANTIHEMOPHILIC FACTOR, HUMAN RECOMBINANT
     Indication: HAEMORRHAGE PROPHYLAXIS
     Dosage: 5000 IU, QD
     Route: 042
     Dates: start: 20180503, end: 20180504
  8. KOVALTRY [Suspect]
     Active Substance: ANTIHEMOPHILIC FACTOR, HUMAN RECOMBINANT
     Indication: HAEMORRHAGE PROPHYLAXIS
     Dosage: 5000 IU, QD
     Route: 042
     Dates: start: 20180508, end: 20180509
  9. KOVALTRY [Suspect]
     Active Substance: ANTIHEMOPHILIC FACTOR, HUMAN RECOMBINANT
     Indication: HAEMORRHAGE PROPHYLAXIS
     Dosage: 4000 IU, QD
     Route: 042
     Dates: start: 20180523
  10. KOVALTRY [Suspect]
     Active Substance: ANTIHEMOPHILIC FACTOR, HUMAN RECOMBINANT
     Indication: HAEMORRHAGE PROPHYLAXIS
     Dosage: 4000 IU, QOD
     Route: 042
     Dates: start: 20180429, end: 20180503
  11. KOVALTRY [Suspect]
     Active Substance: ANTIHEMOPHILIC FACTOR, HUMAN RECOMBINANT
     Indication: HAEMORRHAGE PROPHYLAXIS
     Dosage: 5000 IU, QD
     Route: 042
     Dates: start: 20180514, end: 20180516
  12. KOVALTRY [Suspect]
     Active Substance: ANTIHEMOPHILIC FACTOR, HUMAN RECOMBINANT
     Indication: HAEMORRHAGE PROPHYLAXIS
     Dosage: 4000 IU, BID
     Route: 042
     Dates: start: 201804, end: 20180412
  13. KOVALTRY [Suspect]
     Active Substance: ANTIHEMOPHILIC FACTOR, HUMAN RECOMBINANT
     Indication: HAEMORRHAGE PROPHYLAXIS
     Dosage: 5000 IU, QD
     Route: 042
     Dates: start: 20180511, end: 20180511
  14. KOVALTRY [Suspect]
     Active Substance: ANTIHEMOPHILIC FACTOR, HUMAN RECOMBINANT
     Indication: HAEMORRHAGE PROPHYLAXIS
     Dosage: 4000 IU, QD
     Route: 042
     Dates: start: 20180512, end: 20180513
  15. KOVALTRY [Suspect]
     Active Substance: ANTIHEMOPHILIC FACTOR, HUMAN RECOMBINANT
     Indication: HAEMORRHAGE PROPHYLAXIS
     Dosage: 5000 IU, QD
     Route: 042
     Dates: start: 20180523

REACTIONS (13)
  - Musculoskeletal pain [None]
  - Fall [None]
  - Joint range of motion decreased [None]
  - Haemarthrosis [Recovered/Resolved]
  - Pain [Recovered/Resolved]
  - Haemarthrosis [Recovered/Resolved]
  - Drug effect incomplete [None]
  - Arthralgia [None]
  - Haemarthrosis [None]
  - Loss of consciousness [None]
  - Haemarthrosis [None]
  - Haemarthrosis [None]
  - Pain [None]

NARRATIVE: CASE EVENT DATE: 201804
